FAERS Safety Report 10451667 (Version 4)
Quarter: 2015Q1

REPORT INFORMATION
  Report Type: Spontaneous
  Country: JP (occurrence: JP)
  Receive Date: 20140915
  Receipt Date: 20150320
  Transmission Date: 20150720
  Serious: Yes (Hospitalization, Other)
  Sender: FDA-Public Use
  Company Number: JP-AMGEN-JPNSP2014069819

PATIENT
  Age: 2 Day
  Sex: Female
  Weight: 2 kg

DRUGS (3)
  1. UTEMERIN [Concomitant]
     Active Substance: RITODRINE
     Dosage: UNK
     Route: 064
  2. PREDONINE [Concomitant]
     Active Substance: PREDNISOLONE\PREDNISOLONE ACETATE\PREDNISOLONE SODIUM SUCCINATE
     Indication: JUVENILE IDIOPATHIC ARTHRITIS
     Dosage: 7.5 MG, 1X/DAY
     Route: 064
     Dates: start: 20140225
  3. ENBREL [Suspect]
     Active Substance: ETANERCEPT
     Indication: EXPOSURE DURING PREGNANCY
     Dosage: 50 MG, WEEKLY
     Route: 064
     Dates: start: 20140225

REACTIONS (8)
  - Apnoea neonatal [Unknown]
  - Intraventricular haemorrhage neonatal [Not Recovered/Not Resolved]
  - Bradycardia neonatal [Unknown]
  - Subarachnoid haemorrhage neonatal [Not Recovered/Not Resolved]
  - Maternal exposure during pregnancy [Not Recovered/Not Resolved]
  - Hyperbilirubinaemia neonatal [Recovered/Resolved]
  - Hypocalcaemia [Unknown]
  - Jaundice neonatal [Unknown]

NARRATIVE: CASE EVENT DATE: 2014
